FAERS Safety Report 5841610-4 (Version None)
Quarter: 2008Q3

REPORT INFORMATION
  Report Type: 
  Country: None (occurrence: None)
  Receive Date: 20080812
  Receipt Date: 20080730
  Transmission Date: 20090109
  Serious: Yes (Other)
  Sender: FDA-Public Use
  Company Number: US-ROCHE-552206

PATIENT
  Sex: Male
  Weight: 95.3 kg

DRUGS (3)
  1. ACCUTANE [Suspect]
     Indication: ACNE CYSTIC
     Route: 048
     Dates: start: 20031111, end: 20031209
  2. ACCUTANE [Suspect]
     Route: 048
     Dates: start: 20031210, end: 20040106
  3. ACCUTANE [Suspect]
     Route: 048
     Dates: start: 20040107, end: 20040411

REACTIONS (14)
  - ARTHRALGIA [None]
  - BACK PAIN [None]
  - BLOOD TRIGLYCERIDES INCREASED [None]
  - COLITIS [None]
  - COLITIS ULCERATIVE [None]
  - CROHN'S DISEASE [None]
  - ECZEMA [None]
  - GASTROINTESTINAL DISORDER [None]
  - GASTROOESOPHAGEAL REFLUX DISEASE [None]
  - INFLAMMATORY BOWEL DISEASE [None]
  - IRRITABLE BOWEL SYNDROME [None]
  - NECK INJURY [None]
  - OESOPHAGITIS [None]
  - SINUSITIS [None]
